FAERS Safety Report 8541588-9 (Version None)
Quarter: 2012Q3

REPORT INFORMATION
  Report Type: 
  Country: None (occurrence: None)
  Receive Date: 20120726
  Receipt Date: 20120724
  Transmission Date: 20120928
  Serious: Yes (Other)
  Sender: FDA-Public Use
  Company Number: DE-BAYER-2012-062251

PATIENT
  Age: 40 Year
  Sex: Female
  Weight: 84 kg

DRUGS (1)
  1. BETASERON [Suspect]
     Dosage: UNKNOWN
     Route: 058

REACTIONS (3)
  - TACHYCARDIA [None]
  - THYROIDITIS [None]
  - HYPERTHYROIDISM [None]
